FAERS Safety Report 17427536 (Version 2)
Quarter: 2020Q1

REPORT INFORMATION
  Report Type: Spontaneous
  Country: DK (occurrence: DK)
  Receive Date: 20200217
  Receipt Date: 20200225
  Transmission Date: 20200409
  Serious: Yes (Other)
  Sender: FDA-Public Use
  Company Number: NVSC2020DK022187

PATIENT
  Age: 2 Year
  Sex: Male

DRUGS (26)
  1. KETAMINE [Suspect]
     Active Substance: KETAMINE
     Indication: SEDATIVE THERAPY
     Dosage: UNK
     Route: 065
  2. SERENASE (HALOPERIDOL) [Suspect]
     Active Substance: HALOPERIDOL
     Indication: SEDATIVE THERAPY
     Dosage: UNK
     Route: 065
  3. SERENASE (HALOPERIDOL) [Suspect]
     Active Substance: HALOPERIDOL
     Indication: SLEEP DISORDER THERAPY
  4. RISPERIDONE. [Suspect]
     Active Substance: RISPERIDONE
     Indication: SLEEP DISORDER
     Dosage: UNK
     Route: 065
  5. RISPERIDONE. [Suspect]
     Active Substance: RISPERIDONE
     Indication: SEDATIVE THERAPY
     Route: 065
  6. CLONIDINE. [Suspect]
     Active Substance: CLONIDINE
     Indication: SEDATIVE THERAPY
     Dosage: UNK
     Route: 065
  7. CLONIDINE. [Suspect]
     Active Substance: CLONIDINE
     Indication: SLEEP DISORDER THERAPY
     Dosage: UNK
     Route: 065
  8. MORPHINE SULFATE. [Suspect]
     Active Substance: MORPHINE SULFATE
     Indication: SEDATIVE THERAPY
     Route: 065
  9. LEVOMEPROMAZINE [Suspect]
     Active Substance: LEVOMEPROMAZINE
     Indication: SLEEP DISORDER
     Dosage: UNK
     Route: 065
  10. PROPOFOL. [Suspect]
     Active Substance: PROPOFOL
     Indication: SLEEP DISORDER THERAPY
     Dosage: UNK
     Route: 065
  11. THIOPENTAL SODIUM. [Suspect]
     Active Substance: THIOPENTAL SODIUM
     Indication: SLEEP DISORDER THERAPY
     Dosage: UNK
     Route: 065
  12. MIDAZOLAM HYDROCHLORIDE. [Suspect]
     Active Substance: MIDAZOLAM HYDROCHLORIDE
     Indication: SLEEP DISORDER
     Dosage: UNK
     Route: 065
  13. KETAMINE [Suspect]
     Active Substance: KETAMINE
     Indication: SLEEP DISORDER THERAPY
     Dosage: UNK
     Route: 065
  14. KETAMINE [Suspect]
     Active Substance: KETAMINE
     Indication: SLEEP DISORDER
  15. PROMETHAZINE [Suspect]
     Active Substance: PROMETHAZINE HYDROCHLORIDE
     Indication: SLEEP DISORDER
     Dosage: UNK
     Route: 065
  16. PROMETHAZINE [Suspect]
     Active Substance: PROMETHAZINE HYDROCHLORIDE
     Dosage: UNK
     Route: 065
  17. PROPOFOL. [Suspect]
     Active Substance: PROPOFOL
     Route: 065
  18. MIDAZOLAM HYDROCHLORIDE. [Suspect]
     Active Substance: MIDAZOLAM HYDROCHLORIDE
     Indication: SEDATIVE THERAPY
     Route: 065
  19. PHENOBARBITAL. [Suspect]
     Active Substance: PHENOBARBITAL
     Indication: SLEEP DISORDER
     Dosage: UNK
     Route: 048
  20. FENTANYL CITRATE. [Suspect]
     Active Substance: FENTANYL CITRATE
     Indication: SEDATION
     Dosage: UNK
     Route: 065
  21. FENTANYL CITRATE. [Suspect]
     Active Substance: FENTANYL CITRATE
     Indication: SLEEP DISORDER THERAPY
     Route: 065
  22. MORPHINE SULFATE. [Suspect]
     Active Substance: MORPHINE SULFATE
     Indication: SLEEP DISORDER
     Dosage: UNK
     Route: 065
  23. THIOPENTAL SODIUM. [Suspect]
     Active Substance: THIOPENTAL SODIUM
     Indication: SLEEP DISORDER
     Route: 065
  24. LEVOMEPROMAZINE [Suspect]
     Active Substance: LEVOMEPROMAZINE
     Indication: SEDATIVE THERAPY
     Dosage: UNK
     Route: 065
  25. PHENOBARBITAL. [Suspect]
     Active Substance: PHENOBARBITAL
     Dosage: UNK
     Route: 048
  26. CLONIDINE. [Suspect]
     Active Substance: CLONIDINE
     Indication: SLEEP DISORDER

REACTIONS (5)
  - Extrapyramidal disorder [Recovered/Resolved]
  - Product use issue [Unknown]
  - Off label use [Unknown]
  - Agitation [Recovered/Resolved]
  - Product use in unapproved indication [Unknown]
